FAERS Safety Report 23716213 (Version 1)
Quarter: 2024Q2

REPORT INFORMATION
  Report Type: Other
  Country: US (occurrence: None)
  Receive Date: 20240408
  Receipt Date: 20240408
  Transmission Date: 20240716
  Serious: No
  Sender: FDA-Public Use
  Company Number: US-ROCHE-3540602

PATIENT
  Age: 53 Year
  Sex: Male
  Weight: 81.72 kg

DRUGS (9)
  1. OCREVUS [Suspect]
     Active Substance: OCRELIZUMAB
     Indication: Progressive relapsing multiple sclerosis
     Route: 042
     Dates: start: 20240226, end: 20240312
  2. BENADRYL [Suspect]
     Active Substance: DIPHENHYDRAMINE HYDROCHLORIDE
     Indication: Premedication
     Route: 065
     Dates: start: 20240223
  3. ROSUVASTATIN [Concomitant]
     Active Substance: ROSUVASTATIN
     Indication: Blood cholesterol
     Route: 048
  4. FAMOTIDINE [Concomitant]
     Active Substance: FAMOTIDINE
     Route: 048
  5. LOSARTAN AND HYDROCHLOROTHIAZIDE [Concomitant]
     Active Substance: HYDROCHLOROTHIAZIDE\LOSARTAN POTASSIUM
     Indication: Blood pressure measurement
     Route: 048
  6. CLARITIN [Concomitant]
     Active Substance: LORATADINE
     Indication: Hypersensitivity
     Route: 048
  7. DUPIXENT [Concomitant]
     Active Substance: DUPILUMAB
     Indication: Chronic obstructive pulmonary disease
  8. DUPIXENT [Concomitant]
     Active Substance: DUPILUMAB
     Indication: Psoriasis
  9. BREZTRI [Concomitant]
     Active Substance: BUDESONIDE\FORMOTEROL\GLYCOPYRROLATE
     Indication: Chronic obstructive pulmonary disease
     Route: 055

REACTIONS (8)
  - Feeling abnormal [Recovered/Resolved]
  - Sleep disorder [Recovered/Resolved]
  - Influenza B virus test positive [Recovering/Resolving]
  - Weight decreased [Recovering/Resolving]
  - Vomiting [Unknown]
  - Feeding disorder [Unknown]
  - Feeling abnormal [Unknown]
  - Influenza [Recovering/Resolving]

NARRATIVE: CASE EVENT DATE: 20240226
